FAERS Safety Report 8816346 (Version 1)
Quarter: 2012Q4

REPORT INFORMATION
  Report Type: Spontaneous
  Country: US (occurrence: None)
  Receive Date: 20120928
  Receipt Date: 20120928
  Transmission Date: 20130627
  Serious: No
  Sender: FDA-Public Use
  Company Number: None

PATIENT
  Sex: Female
  Weight: 119.75 kg

DRUGS (1)
  1. PRADAXA [Suspect]
     Indication: ATRIAL FIBRILLATION
     Dates: start: 20110429, end: 20110504

REACTIONS (5)
  - Dysphagia [None]
  - Mouth haemorrhage [None]
  - Pain [None]
  - Abdominal pain [None]
  - Dyspnoea [None]
